FAERS Safety Report 4579678-8 (Version None)
Quarter: 2005Q1

REPORT INFORMATION
  Report Type: 
  Country: None (occurrence: None)
  Receive Date: 20050210
  Receipt Date: 20050126
  Transmission Date: 20050727
  Serious: Yes (Death, Hospitalization)
  Sender: FDA-Public Use
  Company Number: 2004AL000800

PATIENT
  Age: 39 Year
  Sex: Female

DRUGS (2)
  1. ALPRAZOLAM [Suspect]
     Dosage: PO
     Route: 048
  2. ACETAMINOPHEN AND HYDROCODONE BITARTRATE [Suspect]
     Dosage: PO
     Route: 048

REACTIONS (11)
  - ACUTE RESPIRATORY DISTRESS SYNDROME [None]
  - CARDIO-RESPIRATORY ARREST [None]
  - COMA [None]
  - COMPLETED SUICIDE [None]
  - CONVULSION [None]
  - DRUG ABUSER [None]
  - DRUG SCREEN POSITIVE [None]
  - MULTIPLE DRUG OVERDOSE [None]
  - PNEUMONIA ASPIRATION [None]
  - WOUND INFECTION PSEUDOMONAS [None]
  - WOUND INFECTION STAPHYLOCOCCAL [None]
